FAERS Safety Report 5321951-X (Version None)
Quarter: 2007Q2

REPORT INFORMATION
  Report Type: 
  Country: None (occurrence: None)
  Receive Date: 20070511
  Receipt Date: 20070430
  Transmission Date: 20071010
  Serious: Yes (Other)
  Sender: FDA-Public Use
  Company Number: PHNU2007DE01087

PATIENT
  Age: 85 Year
  Sex: Female
  Weight: 72 kg

DRUGS (5)
  1. GLEEVEC [Suspect]
     Indication: CHRONIC MYELOID LEUKAEMIA
     Dosage: 200 MG/DAY
     Route: 048
     Dates: start: 20060126, end: 20070301
  2. GLEEVEC [Suspect]
     Dosage: 400 MG/DAY
     Route: 048
     Dates: start: 20051031, end: 20060118
  3. GLEEVEC [Suspect]
     Dosage: 300 MG/DAY
     Route: 048
     Dates: start: 20070302, end: 20070312
  4. RAMIPRIL [Suspect]
     Indication: HYPERTENSION
     Route: 048
     Dates: end: 20061101
  5. BLOPRESS PLUS [Concomitant]
     Indication: HYPERTENSION
     Route: 048
     Dates: start: 20061101

REACTIONS (5)
  - GASTROINTESTINAL HAEMORRHAGE [None]
  - RASH [None]
  - SKIN LESION [None]
  - SWELLING FACE [None]
  - THROMBOCYTHAEMIA [None]
